FAERS Safety Report 15413246 (Version 3)
Quarter: 2019Q1

REPORT INFORMATION
  Report Type: Spontaneous
  Country: US (occurrence: US)
  Receive Date: 20180921
  Receipt Date: 20190306
  Transmission Date: 20190417
  Serious: Yes (Death, Hospitalization, Other)
  Sender: FDA-Public Use
  Company Number: US-THERATECHNOLOGIES INC.-2018-THE-IBA-000021

PATIENT
  Age: 52 Year
  Sex: Female

DRUGS (1)
  1. TROGARZO [Suspect]
     Active Substance: IBALIZUMAB-UIYK
     Indication: HIV INFECTION
     Dosage: UNK
     Route: 042
     Dates: start: 201807

REACTIONS (14)
  - Pneumatosis intestinalis [Unknown]
  - Anaemia [Unknown]
  - Skin warm [Unknown]
  - Diarrhoea [Unknown]
  - Death [Fatal]
  - Electrolyte imbalance [Unknown]
  - Deep vein thrombosis [Unknown]
  - Thrombocytopenia [Unknown]
  - Malnutrition [Unknown]
  - Metabolic acidosis [Unknown]
  - Joint swelling [Unknown]
  - Product dose omission [Unknown]
  - Adjustment disorder [Unknown]
  - Leukopenia [Unknown]

NARRATIVE: CASE EVENT DATE: 201809
